FAERS Safety Report 16826916 (Version 1)
Quarter: 2019Q3

REPORT INFORMATION
  Report Type: Other
  Country: CA (occurrence: CA)
  Receive Date: 20190919
  Receipt Date: 20190919
  Transmission Date: 20191005
  Serious: Yes (Death, Life-Threatening, Hospitalization, Disabling)
  Sender: FDA-Public Use
  Company Number: CA-TOLMAR, INC.-19CA000078

PATIENT

DRUGS (1)
  1. ELIGARD [Suspect]
     Active Substance: LEUPROLIDE ACETATE
     Indication: PROSTATE CANCER
     Dosage: 45 MG Q6 MONTHS
     Route: 058
     Dates: start: 20180823

REACTIONS (5)
  - Prostate cancer metastatic [Unknown]
  - Death [Fatal]
  - Mobility decreased [Unknown]
  - Fall [Unknown]
  - Dysuria [Unknown]

NARRATIVE: CASE EVENT DATE: 201907
